FAERS Safety Report 10421071 (Version 2)
Quarter: 2014Q4

REPORT INFORMATION
  Report Type: Spontaneous
  Country: US (occurrence: None)
  Receive Date: 20140722
  Receipt Date: 20141121
  Transmission Date: 20150528
  Serious: No
  Sender: FDA-Public Use
  Company Number: 163-10004-14051877

PATIENT
  Age: 40 Year
  Sex: Male

DRUGS (10)
  1. METHOTREXATE [Concomitant]
     Active Substance: METHOTREXATE
  2. ADDERALL (OBETROL) [Concomitant]
  3. CLONAZEPAM. [Concomitant]
     Active Substance: CLONAZEPAM
  4. CYMBALTA [Concomitant]
     Active Substance: DULOXETINE HYDROCHLORIDE
  5. SYNTHROID [Concomitant]
     Active Substance: LEVOTHYROXINE SODIUM
  6. SUBOXONE [Concomitant]
     Active Substance: BUPRENORPHINE HYDROCHLORIDE\NALOXONE HYDROCHLORIDE
  7. NABUMETONE. [Concomitant]
     Active Substance: NABUMETONE
  8. ARAVA [Concomitant]
     Active Substance: LEFLUNOMIDE
  9. OTEZLA [Suspect]
     Active Substance: APREMILAST
     Indication: PSORIATIC ARTHROPATHY
     Route: 048
     Dates: start: 20140429, end: 20140515
  10. FOLIC ACID. [Concomitant]
     Active Substance: FOLIC ACID

REACTIONS (1)
  - Fatigue [None]

NARRATIVE: CASE EVENT DATE: 20140429
